FAERS Safety Report 4424975-X (Version None)
Quarter: 2004Q3

REPORT INFORMATION
  Report Type: 
  Country: None (occurrence: None)
  Receive Date: 20040809
  Receipt Date: 20040726
  Transmission Date: 20050211
  Serious: Yes (Hospitalization)
  Sender: FDA-Public Use
  Company Number: US-JNJFOC-20040707121

PATIENT
  Age: 45 Year
  Sex: Female
  Weight: 135.1719 kg

DRUGS (7)
  1. INFLIXIMAB (INFLIXIMAB, RECOMBINANT) LYOPHILIZED POWDER [Suspect]
     Indication: RHEUMATOID ARTHRITIS
     Dosage: 1200 MG, INTRAVENOUS
     Route: 042
     Dates: start: 20000502
  2. LASIX [Concomitant]
  3. ARAVA [Concomitant]
  4. SYNTHROID [Concomitant]
  5. MOBIC [Concomitant]
  6. PREDNISONE [Concomitant]
  7. ZOLOFT [Concomitant]

REACTIONS (5)
  - BUNDLE BRANCH BLOCK RIGHT [None]
  - HYPERVENTILATION [None]
  - HYPOAESTHESIA [None]
  - PARAESTHESIA [None]
  - URINARY TRACT INFECTION [None]
